FAERS Safety Report 5057279-5 (Version None)
Quarter: 2006Q3

REPORT INFORMATION
  Report Type: 
  Country: None (occurrence: None)
  Receive Date: 20060721
  Receipt Date: 20050715
  Transmission Date: 20061208
  Serious: Yes (Hospitalization)
  Sender: FDA-Public Use
  Company Number: US-GLAXOSMITHKLINE-A0566489A

PATIENT
  Age: 82 Year
  Sex: Female

DRUGS (11)
  1. AVANDIA [Suspect]
     Dosage: 8MG PER DAY
     Route: 048
  2. LIPITOR [Concomitant]
  3. ATENOLOL [Concomitant]
  4. NORVASC [Concomitant]
  5. MOBIC [Concomitant]
  6. PROTONIX [Concomitant]
  7. ZETIA [Concomitant]
  8. LEVOXYL [Concomitant]
  9. HYDROCHLOROTHIAZIDE [Concomitant]
  10. PROPOXYPHENE HYDROCHLORIDE [Concomitant]
  11. METFORMIN [Concomitant]

REACTIONS (1)
  - CARDIAC FAILURE CONGESTIVE [None]
